FAERS Safety Report 6013284-3 (Version None)
Quarter: 2008Q4

REPORT INFORMATION
  Report Type: 
  Country: None (occurrence: None)
  Receive Date: 20081216
  Receipt Date: 20030424
  Transmission Date: 20090506
  Serious: Yes (Hospitalization)
  Sender: FDA-Public Use
  Company Number: HQWYE711216APR03

PATIENT
  Sex: Female
  Weight: 1.82 kg

DRUGS (5)
  1. EFFEXOR XR [Suspect]
     Dosage: 225 MG 1X PER 1 DAY, TRANSPLACENTAL
     Route: 064
     Dates: start: 20020101, end: 20030414
  2. CELEXA [Suspect]
     Dosage: TRANSPLACENTAL
     Route: 064
  3. SEROQUEL [Suspect]
     Dosage: TRANSPLACENTAL
     Route: 064
  4. TOPAMAX [Suspect]
     Dosage: TRANSPLACENTAL
     Route: 064
  5. UNSPECIFIED ANTIBIOTIC (UNSPECIFIED ANTIBIOTIC) [Concomitant]

REACTIONS (5)
  - DRUG WITHDRAWAL SYNDROME NEONATAL [None]
  - INFANTILE APNOEIC ATTACK [None]
  - PREMATURE BABY [None]
  - RESPIRATORY DISORDER NEONATAL [None]
  - TEMPERATURE REGULATION DISORDER [None]
